FAERS Safety Report 4391252-5 (Version None)
Quarter: 2004Q2

REPORT INFORMATION
  Report Type: 
  Country: None (occurrence: None)
  Receive Date: 20040621
  Receipt Date: 20040218
  Transmission Date: 20050107
  Serious: Yes (Death)
  Sender: FDA-Public Use
  Company Number: USA-2002-0003772

PATIENT
  Age: 43 Year
  Sex: Male
  Weight: 83.9 kg

DRUGS (6)
  1. OXYCONTIN [Suspect]
     Indication: PAIN
     Dosage: 80 MG, Q8H, ORAL
     Route: 048
     Dates: start: 20000602
  2. HYDROCODONE BITARTRATE [Suspect]
  3. AMBIEN [Suspect]
     Dosage: ORAL
     Route: 048
  4. MIRTAZAPINE [Suspect]
  5. CLONOPIN [Concomitant]
  6. REMERON [Concomitant]

REACTIONS (2)
  - INTENTIONAL OVERDOSE [None]
  - MULTIPLE DRUG OVERDOSE [None]
